FAERS Safety Report 16046730 (Version 3)
Quarter: 2019Q3

REPORT INFORMATION
  Report Type: Spontaneous
  Country: US (occurrence: US)
  Receive Date: 20190307
  Receipt Date: 20190918
  Transmission Date: 20191004
  Serious: No
  Sender: FDA-Public Use
  Company Number: US-MYLANLABS-2019M1016734

PATIENT
  Age: 38 Year
  Sex: Male
  Weight: 101.5 kg

DRUGS (3)
  1. RANTAC [Concomitant]
     Active Substance: RANITIDINE HYDROCHLORIDE
     Indication: DYSPEPSIA
     Dosage: 4 DOSAGE FORM, QD
  2. RANTAC [Concomitant]
     Active Substance: RANITIDINE HYDROCHLORIDE
     Indication: ULCER
  3. CROMOLYN SODIUM, USP ORAL CONCENTRATE [Suspect]
     Active Substance: CROMOLYN SODIUM
     Indication: MASTOCYTOSIS
     Dosage: 1 AMPOULE SOLUTION 4 TIMES A DAY
     Route: 048
     Dates: start: 2014

REACTIONS (2)
  - Drug ineffective [Unknown]
  - Weight decreased [Unknown]

NARRATIVE: CASE EVENT DATE: 201902
